FAERS Safety Report 8594035-5 (Version None)
Quarter: 2012Q3

REPORT INFORMATION
  Report Type: 
  Country: None (occurrence: None)
  Receive Date: 20120814
  Receipt Date: 20120814
  Transmission Date: 20120928
  Serious: Yes (Hospitalization)
  Sender: FDA-Public Use
  Company Number: IT-ABBOTT-12P-083-0967854-00

PATIENT
  Sex: Male

DRUGS (3)
  1. ALL OTHER THERAPEUTIC PRODUCTS [Suspect]
     Indication: HELICOBACTER INFECTION
     Dosage: 2 UNITS
     Route: 048
     Dates: start: 20120611, end: 20120617
  2. CLARITHROMYCIN [Suspect]
     Indication: HELICOBACTER INFECTION
     Dosage: 2 UNITS
     Route: 048
     Dates: start: 20120611, end: 20120617
  3. LEVOFLOXACIN [Suspect]
     Indication: HELICOBACTER INFECTION
     Dosage: 2 UNITS
     Route: 048
     Dates: start: 20120611, end: 20120617

REACTIONS (4)
  - CHEST DISCOMFORT [None]
  - MALAISE [None]
  - OEDEMA PERIPHERAL [None]
  - FACE OEDEMA [None]
